FAERS Safety Report 9457427 (Version 1)
Quarter: 2013Q3

REPORT INFORMATION
  Report Type: Spontaneous
  Country: US (occurrence: None)
  Receive Date: 20130812
  Receipt Date: 20130812
  Transmission Date: 20140515
  Serious: No
  Sender: FDA-Public Use
  Company Number: None

PATIENT
  Age: 25 Year
  Sex: Female
  Weight: 64.41 kg

DRUGS (1)
  1. LO LOESTRIN FE [Suspect]
     Indication: CONTRACEPTION
     Dosage: 24  ONCE DAILY TAKEN BY MOUTH
     Route: 048
     Dates: start: 20110101, end: 20130501

REACTIONS (8)
  - Dyspnoea [None]
  - Pollakiuria [None]
  - Road traffic accident [None]
  - Headache [None]
  - Fatigue [None]
  - Amenorrhoea [None]
  - Muscle spasms [None]
  - Ovarian cyst [None]
